FAERS Safety Report 19875837 (Version 1)
Quarter: 2021Q3

REPORT INFORMATION
  Report Type: Report from Study
  Country: US (occurrence: US)
  Receive Date: 20210924
  Receipt Date: 20210924
  Transmission Date: 20211014
  Serious: Yes (Hospitalization, Other)
  Sender: FDA-Public Use
  Company Number: US-SA-2021SA309407

PATIENT

DRUGS (1)
  1. DUPILUMAB [Suspect]
     Active Substance: DUPILUMAB
     Indication: DERMATITIS ATOPIC
     Dosage: ACCORDING TO WEIGHT
     Route: 058

REACTIONS (3)
  - Eczema herpeticum [Recovering/Resolving]
  - Herpes simplex [Recovering/Resolving]
  - Localised infection [Recovering/Resolving]
